FAERS Safety Report 6046007-2 (Version None)
Quarter: 2009Q1

REPORT INFORMATION
  Report Type: 
  Country: None (occurrence: None)
  Receive Date: 20090116
  Receipt Date: 20090107
  Transmission Date: 20090719
  Serious: Yes (Other)
  Sender: FDA-Public Use
  Company Number: PAR_02727_2009

PATIENT
  Age: 16 Year
  Sex: Male

DRUGS (2)
  1. IBUPROFEN [Suspect]
     Indication: MUSCULOSKELETAL PAIN
     Dosage: (AVERAGE OF 200-400 MG/DAY, SPORADICALLY)
  2. IBUPROFEN [Suspect]
     Indication: MUSCULOSKELETAL PAIN
     Dosage: (1.2 G,  APPROXIAMTELY)

REACTIONS (11)
  - ALANINE AMINOTRANSFERASE INCREASED [None]
  - ASPARTATE AMINOTRANSFERASE INCREASED [None]
  - BLOOD ALKALINE PHOSPHATASE INCREASED [None]
  - BLOOD BILIRUBIN INCREASED [None]
  - BLOOD COPPER INCREASED [None]
  - CHOLESTASIS [None]
  - CHROMATURIA [None]
  - JAUNDICE [None]
  - LIVER INJURY [None]
  - PRURITUS [None]
  - VITAMIN K DEFICIENCY [None]
